FAERS Safety Report 23859766 (Version 1)
Quarter: 2024Q2

REPORT INFORMATION
  Report Type: Spontaneous
  Country: IT (occurrence: IT)
  Receive Date: 20240515
  Receipt Date: 20240515
  Transmission Date: 20240715
  Serious: Yes (Hospitalization)
  Sender: FDA-Public Use
  Company Number: None

PATIENT
  Age: 71 Year
  Sex: Female

DRUGS (21)
  1. AMIODARONE [Suspect]
     Active Substance: AMIODARONE
     Indication: Tachycardia
     Dosage: 100 MILLIGRAM, QD, 200 MG HALF A TABLET A DAY
     Route: 048
     Dates: start: 202105
  2. MEXILETINE [Suspect]
     Active Substance: MEXILETINE
     Indication: Ventricular tachycardia
     Dosage: 200 MG 3 TIMES DAILY TID. THE DOSAGE WAS THEN TEMPORARILY REDUCED TO 2 TABLETS PER DAY, AND FINALLY
     Route: 048
     Dates: start: 20231222
  3. LEVOTHYROXINE SODIUM [Concomitant]
     Active Substance: LEVOTHYROXINE SODIUM
     Indication: Hypothyroidism
     Dosage: 150 MG TABLET 1 TIME DAILY IN THE MORNING ON AN EMPTY STOMACH 5 DAYS A WEEK. 1 75 MG TABLET
     Route: 065
     Dates: start: 20231223
  4. METOPROLOL TARTRATE [Concomitant]
     Active Substance: METOPROLOL TARTRATE
     Indication: Tachycardia
     Dosage: 150 MILLIGRAM, TID
     Route: 048
  5. BISOPROLOL [Concomitant]
     Active Substance: BISOPROLOL\BISOPROLOL FUMARATE
     Dosage: 2.5 MILLIGRAM, QD
     Route: 065
  6. SACUBITRIL\VALSARTAN [Concomitant]
     Active Substance: SACUBITRIL\VALSARTAN
     Dosage: 24/26MG 2 DAY
     Route: 065
  7. AUGMENTIN [Concomitant]
     Active Substance: AMOXICILLIN\CLAVULANATE POTASSIUM
     Dosage: 1 GRAM, BID,  UNTIL 22-DEC-2023, 20-DEC-2023, 10:54
     Route: 065
  8. AMIODARONE [Concomitant]
     Active Substance: AMIODARONE
     Dosage: UNK
     Route: 042
  9. METOPROLOL [Concomitant]
     Active Substance: METOPROLOL
     Dosage: UNK 3 HALF TABLETS
     Route: 065
     Dates: start: 20220816
  10. METOPROLOL [Concomitant]
     Active Substance: METOPROLOL
     Dosage: UNK
     Route: 042
  11. BROMAZEPAM [Concomitant]
     Active Substance: BROMAZEPAM
     Dosage: UNK 10 DROPS PER
     Route: 065
  12. MAGNESIUM [Concomitant]
     Active Substance: MAGNESIUM
     Dosage: UNK
     Route: 065
  13. LIDOCAINE [Concomitant]
     Active Substance: LIDOCAINE
     Dosage: UNK
     Route: 065
  14. LANSOPRAZOLE [Concomitant]
     Active Substance: LANSOPRAZOLE
     Dosage: UNK 1 TABLET 08.00 HRS
     Route: 065
  15. BROMAZEPAM [Concomitant]
     Active Substance: BROMAZEPAM
     Dosage: UNK, QD, 10 DROPS/DAY THE PATIENT REPORTS WELLBEING AND REFUSES LEXOTAN DROPS
     Route: 065
  16. SPIRONOLACTONE [Concomitant]
     Active Substance: SPIRONOLACTONE
     Dosage: 1 HALF TABLET 16 O^CLOCK, QD, 1 TABLET HRS 16
     Route: 065
  17. POTASSIUM CHLORIDE [Concomitant]
     Active Substance: POTASSIUM CHLORIDE
     Dosage: UNK, BID
     Route: 065
     Dates: start: 20231224
  18. ALDACTONE [Concomitant]
     Active Substance: SPIRONOLACTONE
     Dosage: 50 MILLIGRAM, QD, HALF TABLET/DAY (IN THE AFTERNOON)
     Route: 065
  19. CALCIFEDIOL [Concomitant]
     Active Substance: CALCIFEDIOL
     Dosage: UNK 10ML 1.5MG/10ML 14 DROPS/WEEK
     Route: 065
  20. FLECAINIDE [Concomitant]
     Active Substance: FLECAINIDE
     Dosage: SEP-2022: SUSPENDED FLECAINIDE DUE TO ITCHING AND REINTRODUCED ON SUSPICION THAT THE REACTION
     Route: 065
  21. MEXILETINE HYDROCHLORIDE [Concomitant]
     Active Substance: MEXILETINE HYDROCHLORIDE
     Dosage: 1 DOSAGE FORM, BID, 1 TABLET X 2/DAY (MORNING AND EVENING),
     Route: 065

REACTIONS (11)
  - Anxiety [Not Recovered/Not Resolved]
  - Hallucination, visual [Not Recovered/Not Resolved]
  - Vomiting [Not Recovered/Not Resolved]
  - Bulimia nervosa [Not Recovered/Not Resolved]
  - Fatigue [Not Recovered/Not Resolved]
  - Hyperhidrosis [Not Recovered/Not Resolved]
  - Flatulence [Not Recovered/Not Resolved]
  - Nausea [Not Recovered/Not Resolved]
  - Vision blurred [Recovering/Resolving]
  - Vertigo [Not Recovered/Not Resolved]
  - Tremor [Not Recovered/Not Resolved]

NARRATIVE: CASE EVENT DATE: 20231229
